FAERS Safety Report 7361100-X (Version None)
Quarter: 2011Q1

REPORT INFORMATION
  Report Type: 
  Country: None (occurrence: None)
  Receive Date: 20110318
  Receipt Date: 20110315
  Transmission Date: 20110831
  Serious: Yes (Death, Other)
  Sender: FDA-Public Use
  Company Number: PHHY2011CA10620

PATIENT
  Sex: Female

DRUGS (1)
  1. ACLASTA [Suspect]
     Indication: OSTEOPOROSIS
     Dates: start: 20100217

REACTIONS (4)
  - PULMONARY OEDEMA [None]
  - DEATH [None]
  - CARDIAC INFECTION [None]
  - INTESTINAL PERFORATION [None]
